FAERS Safety Report 9645718 (Version 1)
Quarter: 2013Q4

REPORT INFORMATION
  Report Type: Spontaneous
  Country: US (occurrence: None)
  Receive Date: 20131024
  Receipt Date: 20131024
  Transmission Date: 20140711
  Serious: Yes (Other)
  Sender: FDA-Public Use
  Company Number: None

PATIENT
  Age: 48 Year
  Sex: Female
  Weight: 39.1 kg

DRUGS (1)
  1. ABACAVIR [Suspect]
     Indication: HIV INFECTION
     Route: 048
     Dates: start: 201307, end: 201308

REACTIONS (5)
  - Abdominal pain upper [None]
  - Abdominal distension [None]
  - Diarrhoea [None]
  - Nausea [None]
  - Product substitution issue [None]
